FAERS Safety Report 8131263-7 (Version None)
Quarter: 2012Q1

REPORT INFORMATION
  Report Type: 
  Country: None (occurrence: None)
  Receive Date: 20120103
  Receipt Date: 20110919
  Transmission Date: 20120608
  Serious: No
  Sender: FDA-Public Use
  Company Number: AE-2011-001679

PATIENT
  Age: 56 Year
  Sex: Male

DRUGS (5)
  1. WELLBUTRIN [Concomitant]
  2. RIBAPAC (RIBAVIRIN) [Concomitant]
  3. LISINOPRIL [Concomitant]
  4. PEGASYS [Concomitant]
  5. INCIVEK [Suspect]
     Dosage: 2250 MG (750 MG,3 IN 1 D),ORAL
     Route: 048
     Dates: start: 20110916

REACTIONS (1)
  - RASH [None]
